FAERS Safety Report 5066845-2 (Version None)
Quarter: 2006Q3

REPORT INFORMATION
  Report Type: 
  Country: None (occurrence: None)
  Receive Date: 20060726
  Receipt Date: 20060705
  Transmission Date: 20061208
  Serious: Yes (Other)
  Sender: FDA-Public Use
  Company Number: 2006-BP-07776RO

PATIENT
  Age: 77 Year
  Sex: Female

DRUGS (7)
  1. METHOTREXATE [Suspect]
     Indication: RHEUMATOID ARTHRITIS
     Dosage: 15 MG PER WEEK (1 IN 1 WK),
     Dates: start: 19990601
  2. CYCLOSPORINE [Suspect]
     Indication: RHEUMATOID ARTHRITIS
     Dosage: 2.5 MG/KG/DAY
     Dates: start: 19990601
  3. CHLOROQUINE (CHLOROQUINE) [Suspect]
     Indication: RHEUMATOID ARTHRITIS
     Dates: start: 20010301
  4. SULFASALAZINE [Suspect]
     Indication: RHEUMATOID ARTHRITIS
     Dates: start: 20010301
  5. RITUXIMAB (RITUXIMAB) [Suspect]
     Indication: RHEUMATOID ARTHRITIS
     Dosage: 375 MG/M2 INTRAVENOUSLY/WEEKLY X 4 WEEKS (1 IN 1 WK), IV
     Route: 042
     Dates: start: 20010801, end: 20010801
  6. LEFLUNOMIDE [Suspect]
     Indication: RHEUMATOID ARTHRITIS
     Dates: start: 20020101
  7. ENBREL [Suspect]
     Indication: RHEUMATOID ARTHRITIS
     Dosage: 25 MG TWICE IN ONE WEEK (25 MG, 2 IN 1 WK)
     Dates: start: 20030401

REACTIONS (13)
  - ABDOMINAL MASS [None]
  - BLOOD LACTATE DEHYDROGENASE INCREASED [None]
  - DIFFUSE LARGE B-CELL LYMPHOMA [None]
  - FATIGUE [None]
  - HEPATOMEGALY [None]
  - HYPERHIDROSIS [None]
  - LYMPHADENOPATHY [None]
  - LYMPHOPROLIFERATIVE DISORDER [None]
  - NON-HODGKIN'S LYMPHOMA [None]
  - PRURITUS [None]
  - PYREXIA [None]
  - SPLENOMEGALY [None]
  - SYNOVITIS [None]
